FAERS Safety Report 22606669 (Version 1)
Quarter: 2023Q2

REPORT INFORMATION
  Report Type: Report from Study
  Country: SG (occurrence: None)
  Receive Date: 20230615
  Receipt Date: 20230615
  Transmission Date: 20230721
  Serious: Yes (Other)
  Sender: FDA-Public Use
  Company Number: 2023A138925

PATIENT
  Age: 730 Month

DRUGS (1)
  1. TAGRISSO [Suspect]
     Active Substance: OSIMERTINIB
     Indication: Non-small cell lung cancer
     Route: 048
     Dates: start: 20221110, end: 202212

REACTIONS (3)
  - Dry skin [Unknown]
  - Skin haemorrhage [Unknown]
  - Skin wound [Unknown]

NARRATIVE: CASE EVENT DATE: 20221201
